FAERS Safety Report 8363617-8 (Version None)
Quarter: 2012Q2

REPORT INFORMATION
  Report Type: 
  Country: None (occurrence: None)
  Receive Date: 20120516
  Receipt Date: 20120507
  Transmission Date: 20120825
  Serious: Yes (Other)
  Sender: FDA-Public Use
  Company Number: US-BAYER-2012-027166

PATIENT
  Age: 28 Year
  Sex: Female
  Weight: 65.306 kg

DRUGS (2)
  1. MIRENA [Suspect]
     Indication: CONTRACEPTION
     Dosage: 20 MCG/24HR, CONT
     Route: 015
     Dates: start: 20111128, end: 20111213
  2. PARAGARD T 380A [Suspect]
     Dosage: UNK
     Route: 015
     Dates: end: 20111128

REACTIONS (2)
  - HAEMORRHAGIC OVARIAN CYST [None]
  - ECTOPIC PREGNANCY WITH INTRAUTERINE DEVICE [None]
